FAERS Safety Report 5689140-7 (Version None)
Quarter: 2008Q1

REPORT INFORMATION
  Report Type: 
  Country: None (occurrence: None)
  Receive Date: 20080331
  Receipt Date: 20080325
  Transmission Date: 20080703
  Serious: Yes (Other)
  Sender: FDA-Public Use
  Company Number: US-BRISTOL-MYERS SQUIBB COMPANY-14118525

PATIENT
  Age: 5 Year
  Sex: Female
  Weight: 19 kg

DRUGS (1)
  1. ATAZANAVIR SULFATE [Suspect]
     Indication: HIV INFECTION
     Dosage: STARTED-}150MG: 22DEC03-25JAN05, 200MG 26JAN2005-27AUG2007, 250MG FROM 28AUG2007-}CONTINUES
     Route: 048
     Dates: start: 20031222

REACTIONS (6)
  - ACANTHOSIS NIGRICANS [None]
  - BLOOD INSULIN INCREASED [None]
  - DYSLIPIDAEMIA [None]
  - HYPERKERATOSIS [None]
  - KERATOSIS PILARIS [None]
  - SKIN HYPERPIGMENTATION [None]
